FAERS Safety Report 18722851 (Version 1)
Quarter: 2021Q1

REPORT INFORMATION
  Report Type: Spontaneous
  Country: US (occurrence: US)
  Receive Date: 20210111
  Receipt Date: 20210111
  Transmission Date: 20210419
  Serious: No
  Sender: FDA-Public Use
  Company Number: US-SA-2021SA005572

PATIENT
  Age: 5 Year
  Sex: Female

DRUGS (2)
  1. DUPIXENT [Suspect]
     Active Substance: DUPILUMAB
     Indication: DERMATITIS ATOPIC
     Dosage: UNK UNK, 1X
     Dates: start: 20201105, end: 20201105
  2. DUPIXENT [Suspect]
     Active Substance: DUPILUMAB
     Dosage: 300 MG, Q28DAYS
     Dates: start: 2020

REACTIONS (4)
  - Salivary hypersecretion [Unknown]
  - Product use issue [Unknown]
  - Urinary incontinence [Unknown]
  - Glossodynia [Unknown]

NARRATIVE: CASE EVENT DATE: 20201105
